FAERS Safety Report 16573957 (Version 2)
Quarter: 2019Q3

REPORT INFORMATION
  Report Type: Spontaneous
  Country: US (occurrence: US)
  Receive Date: 20190715
  Receipt Date: 20190729
  Transmission Date: 20191004
  Serious: No
  Sender: FDA-Public Use
  Company Number: US-MYLANLABS-2019M1060637

PATIENT
  Sex: Female

DRUGS (1)
  1. ESTRADIOL TRANSDERMAL SYSTEM [Suspect]
     Active Substance: ESTRADIOL
     Indication: PRODUCT USED FOR UNKNOWN INDICATION
     Dosage: UNK

REACTIONS (8)
  - Night sweats [Recovering/Resolving]
  - Drug ineffective [Not Recovered/Not Resolved]
  - Irritability [Recovering/Resolving]
  - Insomnia [Recovering/Resolving]
  - Hot flush [Recovering/Resolving]
  - Product substitution issue [Unknown]
  - Feeling abnormal [Recovering/Resolving]
  - Migraine [Recovering/Resolving]
